FAERS Safety Report 15739771 (Version 1)
Quarter: 2018Q4

REPORT INFORMATION
  Report Type: Spontaneous
  Country: TW (occurrence: TW)
  Receive Date: 20181219
  Receipt Date: 20181219
  Transmission Date: 20190205
  Serious: Yes (Other)
  Sender: FDA-Public Use
  Company Number: TW-ROCHE-2233569

PATIENT
  Age: 88 Year
  Sex: Male

DRUGS (1)
  1. ACTEMRA [Suspect]
     Active Substance: TOCILIZUMAB
     Indication: RHEUMATOID ARTHRITIS
     Dosage: UNCERTAINTY
     Route: 065
     Dates: start: 201808

REACTIONS (2)
  - Colon cancer [Unknown]
  - Hepatocellular carcinoma [Unknown]
